FAERS Safety Report 6260988 (Version 2)
Quarter: 2013Q3

REPORT INFORMATION
  Report Type: Other
  Country: US (occurrence: US)
  Receive Date: 20070314
  Receipt Date: 20130812
  Transmission Date: 20140515
  Serious: Yes (Other)
  Sender: FDA-Public Use
  Company Number: US-BRISTOL-MYERS SQUIBB COMPANY-13707351

PATIENT
  Age: 55 Year
  Sex: Male

DRUGS (6)
  1. ATAZANAVIR [Suspect]
     Indication: HIV INFECTION
  2. STAVUDINE [Concomitant]
     Indication: HIV INFECTION
  3. TENOFOVIR DISOPROXIL FUMARATE [Concomitant]
  4. SULFAMETHOXAZOLE + TRIMETHOPRIM [Concomitant]
  5. FLUCONAZOLE [Concomitant]
  6. CIPROFLOXACIN [Concomitant]

REACTIONS (1)
  - Nephrolithiasis [None]
